FAERS Safety Report 26107343 (Version 1)
Quarter: 2025Q4

REPORT INFORMATION
  Report Type: Report from Study
  Country: US (occurrence: US)
  Receive Date: 20251201
  Receipt Date: 20251201
  Transmission Date: 20260117
  Serious: Yes (Hospitalization)
  Sender: NUVATION BIO
  Company Number: US-NUVATION BIO INC.-2025NUV000307

PATIENT
  Age: 57 Year
  Sex: Female

DRUGS (15)
  1. IBTROZI [Suspect]
     Active Substance: TALETRECTINIB ADIPATE
     Indication: Lung neoplasm malignant
     Dosage: 600 MG, QD
     Dates: start: 20251022
  2. IBTROZI [Suspect]
     Active Substance: TALETRECTINIB ADIPATE
     Dosage: 400 MG, QD
     Dates: end: 20241118
  3. VITAMIN B COMPLEX [Concomitant]
     Active Substance: CYANOCOBALAMIN\DEXPANTHENOL\NIACINAMIDE\PYRIDOXINE HYDROCHLORIDE\RIBOFLAVIN 5^-PHOSPHATE SODIUM\THIA
     Dosage: UNK
  4. GARLIC [Concomitant]
     Active Substance: GARLIC
     Dosage: UNK
  5. MINERALS\VITAMINS [Concomitant]
     Active Substance: MINERALS\VITAMINS
     Dosage: UNK
  6. Immune enhance [Concomitant]
     Dosage: UNK
  7. IRON [Concomitant]
     Active Substance: IRON
     Dosage: UNK
  8. FISH OIL\OMEGA-3 FATTY ACIDS [Concomitant]
     Active Substance: FISH OIL\OMEGA-3 FATTY ACIDS
     Dosage: UNK
  9. MAGNESIUM OXIDE [Concomitant]
     Active Substance: MAGNESIUM OXIDE
     Dosage: UNK
  10. SYNTHROID [Concomitant]
     Active Substance: LEVOTHYROXINE SODIUM
     Dosage: UNK
  11. VITAMIN D3 [Concomitant]
     Active Substance: CHOLECALCIFEROL
     Dosage: UNK
  12. XARELTO [Concomitant]
     Active Substance: RIVAROXABAN
     Dosage: UNK
  13. VITAMIN C [Concomitant]
     Active Substance: ASCORBIC ACID
     Dosage: UNK
  14. OMEPRAZOLE [Concomitant]
     Active Substance: OMEPRAZOLE
     Dosage: UNK
  15. WARFARIN [Concomitant]
     Active Substance: WARFARIN

REACTIONS (7)
  - Abdominal pain upper [Not Recovered/Not Resolved]
  - Dyspnoea [Unknown]
  - Dysphagia [Unknown]
  - Nausea [Not Recovered/Not Resolved]
  - Vomiting [Unknown]
  - Diarrhoea [Not Recovered/Not Resolved]
  - Hepatic enzyme increased [Not Recovered/Not Resolved]

NARRATIVE: CASE EVENT DATE: 20251022
